FAERS Safety Report 19226422 (Version 1)
Quarter: 2021Q2

REPORT INFORMATION
  Report Type: Spontaneous
  Country: CA (occurrence: CA)
  Receive Date: 20210506
  Receipt Date: 20210506
  Transmission Date: 20210717
  Serious: Yes (Hospitalization)
  Sender: FDA-Public Use
  Company Number: CA-PFIZER INC-2021470184

PATIENT
  Age: 20 Year
  Sex: Female

DRUGS (2)
  1. EFFEXOR XR [Suspect]
     Active Substance: VENLAFAXINE HYDROCHLORIDE
     Indication: ANXIETY
  2. EFFEXOR XR [Suspect]
     Active Substance: VENLAFAXINE HYDROCHLORIDE
     Indication: PREMENSTRUAL SYNDROME
     Dosage: 75 MG, 1X/DAY
     Route: 048

REACTIONS (10)
  - Acne cystic [Recovered/Resolved]
  - Blood pressure increased [Recovered/Resolved]
  - Weight increased [Recovered/Resolved]
  - Dissociation [Recovered/Resolved]
  - Urticaria [Recovered/Resolved]
  - Abnormal dreams [Recovered/Resolved]
  - Tachycardia [Recovered/Resolved]
  - Muscle twitching [Recovered/Resolved]
  - Panic attack [Recovered/Resolved]
  - Withdrawal syndrome [Recovered/Resolved]
